FAERS Safety Report 7365756-7 (Version None)
Quarter: 2011Q1

REPORT INFORMATION
  Report Type: 
  Country: None (occurrence: None)
  Receive Date: 20110322
  Receipt Date: 20110316
  Transmission Date: 20110831
  Serious: Yes (Other)
  Sender: FDA-Public Use
  Company Number: US-ABBOTT-11P-163-0711727-00

PATIENT
  Sex: Male
  Weight: 95.34 kg

DRUGS (4)
  1. AMLODIPINE [Concomitant]
     Indication: PRODUCT USED FOR UNKNOWN INDICATION
     Dosage: AT BEDTIME
     Route: 048
  2. NIASPAN [Suspect]
     Indication: HIGH DENSITY LIPOPROTEIN DECREASED
     Dosage: AT BEDTIME
     Route: 048
  3. PLAVIX [Concomitant]
  4. ASPIRIN [Concomitant]
     Indication: PRODUCT USED FOR UNKNOWN INDICATION
     Dosage: AT BEDTIME
     Route: 048

REACTIONS (6)
  - FLUSHING [None]
  - CORONARY ARTERIAL STENT INSERTION [None]
  - MUSCLE SPASMS [None]
  - POST PROCEDURAL INFECTION [None]
  - DEPRESSION [None]
  - CHEST PAIN [None]
